FAERS Safety Report 24759112 (Version 1)
Quarter: 2024Q4

REPORT INFORMATION
  Report Type: Spontaneous
  Country: US (occurrence: US)
  Receive Date: 20241220
  Receipt Date: 20241220
  Transmission Date: 20250115
  Serious: No
  Sender: BRAEBURN PHARMACEUTICALS
  Company Number: US-BRAEBURN-US-BRA-24-000780

PATIENT
  Sex: Male

DRUGS (2)
  1. BRIXADI [Suspect]
     Active Substance: BUPRENORPHINE
     Indication: Drug dependence
     Dosage: 128 MILLIGRAM, 4W
     Route: 058
  2. BRIXADI [Suspect]
     Active Substance: BUPRENORPHINE
     Dosage: 128 MILLIGRAM, 3W
     Route: 058

REACTIONS (2)
  - Withdrawal syndrome [Unknown]
  - Off label use [Unknown]
